FAERS Safety Report 5276198-2 (Version None)
Quarter: 2007Q1

REPORT INFORMATION
  Report Type: 
  Country: None (occurrence: None)
  Receive Date: 20070322
  Receipt Date: 20070322
  Transmission Date: 20070707
  Serious: Yes (Hospitalization)
  Sender: FDA-Public Use
  Company Number: None

PATIENT
  Sex: Male
  Weight: 77.1 kg

DRUGS (15)
  1. SIMVASTATIN [Suspect]
     Indication: HYPERLIPIDAEMIA
     Dosage: 80 MG AT BEDTIME PO
     Route: 048
     Dates: start: 20030901, end: 20070107
  2. GEMFIBROZIL [Suspect]
     Indication: HYPERTRIGLYCERIDAEMIA
     Dosage: 600 MG TWICE DAILY PO
     Route: 048
     Dates: start: 20030701
  3. FERROUS S04 [Concomitant]
  4. VARDENAFIL [Concomitant]
  5. FUROSEMIDE [Concomitant]
  6. GLIMEPIRIDE [Concomitant]
  7. SIMVASTATIN [Concomitant]
  8. AMITRIPTYLINE HCL [Concomitant]
  9. RANITIDINE HCL [Concomitant]
  10. SODIUM BICARBONATE [Concomitant]
  11. EPOETIN ALFA [Concomitant]
  12. SEVELAMER HCL [Concomitant]
  13. ATENOLOL [Concomitant]
  14. FELODIPINE [Concomitant]
  15. LISINOPRIL [Concomitant]

REACTIONS (12)
  - CONFUSIONAL STATE [None]
  - DECREASED APPETITE [None]
  - DIALYSIS [None]
  - GAIT DISTURBANCE [None]
  - HYPOGLYCAEMIA [None]
  - INCOHERENT [None]
  - METABOLIC ACIDOSIS [None]
  - PAIN IN EXTREMITY [None]
  - RENAL FAILURE ACUTE [None]
  - RENAL FUNCTION TEST ABNORMAL [None]
  - RHABDOMYOLYSIS [None]
  - UNRESPONSIVE TO STIMULI [None]
